FAERS Safety Report 5457484-X (Version None)
Quarter: 2007Q3

REPORT INFORMATION
  Report Type: 
  Country: None (occurrence: None)
  Receive Date: 20070918
  Receipt Date: 20070228
  Transmission Date: 20080115
  Serious: Yes (Hospitalization)
  Sender: FDA-Public Use
  Company Number: US-ASTRAZENECA-2007UW04070

PATIENT
  Sex: Female
  Weight: 81.8 kg

DRUGS (6)
  1. SEROQUEL [Suspect]
     Indication: BIPOLAR DISORDER
     Dosage: 100MG-400MG
     Route: 048
     Dates: start: 20030101, end: 20050101
  2. SEROQUEL [Suspect]
     Route: 048
  3. RISPERDAL [Suspect]
     Indication: BIPOLAR DISORDER
     Dates: start: 20050101, end: 20050101
  4. ABILIFY [Concomitant]
     Dates: start: 20050101, end: 20060101
  5. GEODON [Concomitant]
     Dates: start: 20060101
  6. THORAZINE [Concomitant]

REACTIONS (2)
  - DIABETES MELLITUS [None]
  - OVERDOSE [None]
